FAERS Safety Report 16677040 (Version 1)
Quarter: 2019Q3

REPORT INFORMATION
  Report Type: Spontaneous
  Country: DE (occurrence: DE)
  Receive Date: 20190807
  Receipt Date: 20190807
  Transmission Date: 20191004
  Serious: Yes (Other)
  Sender: FDA-Public Use
  Company Number: DE-ROCHE-2370463

PATIENT
  Sex: Female
  Weight: 60 kg

DRUGS (7)
  1. RITUXIMAB. [Suspect]
     Active Substance: RITUXIMAB
     Indication: DIFFUSE LARGE B-CELL LYMPHOMA
     Dosage: ACCORDING TO R-BENDAMUSTINE REGIMEN, 2ND LINE THERAPY, 2 CYCLES
     Route: 065
     Dates: start: 201708, end: 201710
  2. GEMCITABINE. [Suspect]
     Active Substance: GEMCITABINE
     Indication: DIFFUSE LARGE B-CELL LYMPHOMA
     Dosage: ACCORDING TO R-GEMOX REGIMEN, FURTHER LINE THERAPY, 4 CYCLES
     Route: 065
     Dates: start: 201711, end: 201801
  3. RITUXIMAB. [Suspect]
     Active Substance: RITUXIMAB
     Dosage: ACCORDING TO R-GEMOX REGIMEN, FURTHER LINE THERAPY, 4 CYCLES
     Route: 065
     Dates: start: 201711, end: 201801
  4. BENDAMUSTINE [Suspect]
     Active Substance: BENDAMUSTINE
     Indication: DIFFUSE LARGE B-CELL LYMPHOMA
     Dosage: ACCORDING TO R-BENDAMUSTINE REGIMEN, 2ND LINE THERAPY, 2 CYCLES
     Route: 065
     Dates: start: 201708, end: 201710
  5. OXALIPLATIN. [Suspect]
     Active Substance: OXALIPLATIN
     Indication: DIFFUSE LARGE B-CELL LYMPHOMA
     Dosage: ACCORDING TO R-GEMOX REGIMEN, FURTHER LINE THERAPY, 4 CYCLES
     Route: 065
     Dates: start: 201711, end: 201801
  6. RITUXIMAB. [Suspect]
     Active Substance: RITUXIMAB
     Dosage: ACCORDING TO R-DHAP REGIMEN, FURTHER LINE THERAPY, 3 CYCLES
     Route: 065
     Dates: start: 201806, end: 201808
  7. KTE C19 [Suspect]
     Active Substance: AXICABTAGENE CILOLEUCEL
     Indication: DIFFUSE LARGE B-CELL LYMPHOMA
     Dosage: FURTHER LINE THERAPY, 1 CYCLE
     Route: 065
     Dates: start: 201901, end: 201901

REACTIONS (1)
  - Haematotoxicity [Recovered/Resolved]
